FAERS Safety Report 23933323 (Version 2)
Quarter: 2024Q2

REPORT INFORMATION
  Report Type: Spontaneous
  Country: VN (occurrence: VN)
  Receive Date: 20240603
  Receipt Date: 20240617
  Transmission Date: 20240716
  Serious: Yes (Death, Hospitalization, Other)
  Sender: FDA-Public Use
  Company Number: VN-SA-SAC20240530000639

PATIENT
  Age: 8 Month
  Sex: Female
  Weight: 7.5 kg

DRUGS (2)
  1. MYOZYME [Suspect]
     Active Substance: ALGLUCOSIDASE ALFA
     Indication: Glycogen storage disease type II
     Dosage: 20 MG/KG, QOW
     Route: 042
     Dates: start: 20220919, end: 20230419
  2. SOLU-MEDROL [Concomitant]
     Active Substance: METHYLPREDNISOLONE SODIUM SUCCINATE
     Indication: Premedication
     Dosage: 0.5 MG/KG
     Route: 042
     Dates: start: 20220919, end: 20230419

REACTIONS (2)
  - Death [Fatal]
  - Cyanosis [Unknown]

NARRATIVE: CASE EVENT DATE: 20230424
